FAERS Safety Report 5277935-3 (Version None)
Quarter: 2007Q1

REPORT INFORMATION
  Report Type: 
  Country: None (occurrence: None)
  Receive Date: 20070327
  Receipt Date: 20070315
  Transmission Date: 20070707
  Serious: Yes (Death)
  Sender: FDA-Public Use
  Company Number: GB-PFIZER INC-2007022665

PATIENT
  Age: 30 Month
  Sex: Male

DRUGS (2)
  1. EPIRUBICIN HYDROCHLORIDE [Suspect]
     Indication: RHABDOMYOSARCOMA
     Dosage: DAILY DOSE:150MG/M*2
  2. VINCRISTINE SULFATE [Suspect]
     Indication: RHABDOMYOSARCOMA

REACTIONS (1)
  - INTERSTITIAL LUNG DISEASE [None]
